FAERS Safety Report 6373282-7 (Version None)
Quarter: 2009Q3

REPORT INFORMATION
  Report Type: 
  Country: None (occurrence: None)
  Receive Date: 20090924
  Receipt Date: 20090401
  Transmission Date: 20100115
  Serious: No
  Sender: FDA-Public Use
  Company Number: US-ASTRAZENECA-2009UW08233

PATIENT
  Sex: Female

DRUGS (4)
  1. SEROQUEL [Suspect]
     Route: 048
     Dates: start: 20081001
  2. SEROQUEL [Suspect]
     Route: 048
  3. XANAX [Concomitant]
  4. CELEXA [Concomitant]

REACTIONS (1)
  - LACTATION DISORDER [None]
